FAERS Safety Report 11663134 (Version 1)
Quarter: 2015Q4

REPORT INFORMATION
  Report Type: Spontaneous
  Country: US (occurrence: US)
  Receive Date: 20151027
  Receipt Date: 20151027
  Transmission Date: 20160304
  Serious: No
  Sender: FDA-Public Use
  Company Number: US-MEDA-2013040068

PATIENT

DRUGS (1)
  1. EDLUAR [Suspect]
     Active Substance: ZOLPIDEM TARTRATE

REACTIONS (1)
  - Hepatic enzyme abnormal [Unknown]
